FAERS Safety Report 23895604 (Version 1)
Quarter: 2024Q2

REPORT INFORMATION
  Report Type: Spontaneous
  Country: US (occurrence: None)
  Receive Date: 20240523
  Receipt Date: 20240523
  Transmission Date: 20240716
  Serious: Yes (Other)
  Sender: FDA-Public Use
  Company Number: None

PATIENT
  Age: 38 Year
  Sex: Female
  Weight: 49.5 kg

DRUGS (7)
  1. LEUPROLIDE [Suspect]
     Active Substance: LEUPROLIDE
     Dosage: OTHER QUANTITY : 20 UNITS;?FREQUENCY : TWICE A DAY;?
     Route: 058
     Dates: start: 20240512, end: 20240523
  2. GONAL-F [Concomitant]
     Active Substance: FOLLITROPIN
  3. MENOPUR [Concomitant]
     Active Substance: FOLLITROPIN\LUTEINIZING HORMONE
  4. NALTREXONE [Concomitant]
     Active Substance: NALTREXONE
  5. ARMOUR THYROID [Concomitant]
     Active Substance: THYROID, PORCINE
  6. Liver capsules [Concomitant]
  7. VITAMINS [Concomitant]
     Active Substance: VITAMINS

REACTIONS (3)
  - Alopecia [None]
  - Sleep disorder [None]
  - Blood glucose increased [None]

NARRATIVE: CASE EVENT DATE: 20240521
